FAERS Safety Report 10220523 (Version 2)
Quarter: 2014Q2

REPORT INFORMATION
  Report Type: Spontaneous
  Country: DE (occurrence: DE)
  Receive Date: 20140606
  Receipt Date: 20140606
  Transmission Date: 20141212
  Serious: Yes (Hospitalization)
  Sender: FDA-Public Use
  Company Number: DE-AMGEN INC.-DEUSP2014037959

PATIENT
  Age: 14 Year
  Sex: Female
  Weight: 86.3 kg

DRUGS (3)
  1. ENBREL [Suspect]
     Indication: PRODUCT USED FOR UNKNOWN INDICATION
     Dosage: 50 MG, QWK
     Route: 058
     Dates: start: 201403, end: 201405
  2. ENBREL [Suspect]
     Dosage: 25 MG, 2X/WEEK
     Route: 058
     Dates: start: 201405, end: 201405
  3. PANTOZOL                           /01263204/ [Concomitant]
     Indication: ABDOMINAL PAIN
     Dosage: 20 MG, AS NEEDED
     Route: 065

REACTIONS (4)
  - Hypersensitivity [Not Recovered/Not Resolved]
  - Muscle spasms [Not Recovered/Not Resolved]
  - Erythema [Not Recovered/Not Resolved]
  - Drug intolerance [Not Recovered/Not Resolved]
